FAERS Safety Report 12712912 (Version 1)
Quarter: 2016Q3

REPORT INFORMATION
  Report Type: Spontaneous
  Country: US (occurrence: US)
  Receive Date: 20160902
  Receipt Date: 20160902
  Transmission Date: 20161109
  Serious: Yes (Other)
  Sender: FDA-Public Use
  Company Number: US-ELI_LILLY_AND_COMPANY-US201608011693

PATIENT
  Age: 10 Year
  Sex: Male

DRUGS (5)
  1. INTUNIV [Concomitant]
     Active Substance: GUANFACINE HYDROCHLORIDE
  2. SAPHRIS [Concomitant]
     Active Substance: ASENAPINE MALEATE
  3. PRAZOSIN [Concomitant]
     Active Substance: PRAZOSIN
  4. STRATTERA [Suspect]
     Active Substance: ATOMOXETINE HYDROCHLORIDE
     Indication: KLEPTOMANIA
     Dosage: 10 MG, UNKNOWN
     Route: 065
  5. PROZAC [Concomitant]
     Active Substance: FLUOXETINE HYDROCHLORIDE

REACTIONS (4)
  - Weight increased [Unknown]
  - Middle insomnia [Unknown]
  - Increased appetite [Unknown]
  - Off label use [Unknown]
